FAERS Safety Report 23381785 (Version 1)
Quarter: 2024Q1

REPORT INFORMATION
  Report Type: Spontaneous
  Country: US (occurrence: None)
  Receive Date: 20240108
  Receipt Date: 20240108
  Transmission Date: 20240410
  Serious: Yes (Life-Threatening, Disabling, Other)
  Sender: FDA-Public Use
  Company Number: None

PATIENT
  Age: 70 Year
  Sex: Female
  Weight: 41.4 kg

DRUGS (8)
  1. CIPRO [Suspect]
     Active Substance: CIPROFLOXACIN HYDROCHLORIDE
     Indication: Infection
     Dates: start: 20230920, end: 20230930
  2. LEVAQUIN [Suspect]
     Active Substance: LEVOFLOXACIN
  3. For CRPS/ gastroparesis ( Ketamine oral,Diazapam,seroquel,lithium) HRT [Concomitant]
  4. For CRPS/ gastroparesis ( Ketamine oral,Diazapam,seroquel,lithium) HRT [Concomitant]
  5. Estrogen cream [Concomitant]
  6. PRILOSEC [Concomitant]
     Active Substance: OMEPRAZOLE MAGNESIUM
  7. promethezine [Concomitant]
  8. XIIDRA [Concomitant]
     Active Substance: LIFITEGRAST

REACTIONS (9)
  - Injection site pain [None]
  - Drug ineffective [None]
  - Ligament disorder [None]
  - Arthropathy [None]
  - Muscle disorder [None]
  - Brain fog [None]
  - Depression [None]
  - Anxiety [None]
  - Listless [None]

NARRATIVE: CASE EVENT DATE: 20230920
